FAERS Safety Report 19778750 (Version 2)
Quarter: 2021Q3

REPORT INFORMATION
  Report Type: Report from Study
  Country: US (occurrence: US)
  Receive Date: 20210902
  Receipt Date: 20210909
  Transmission Date: 20211014
  Serious: Yes (Hospitalization, Other)
  Sender: FDA-Public Use
  Company Number: NVSC2021US195559

PATIENT
  Age: 75 Year
  Sex: Female

DRUGS (2)
  1. PIQRAY [Suspect]
     Active Substance: ALPELISIB
     Indication: BREAST CANCER
     Dosage: 300 MG, QD
     Route: 048
     Dates: start: 20210814
  2. PIQRAY [Suspect]
     Active Substance: ALPELISIB
     Dosage: 300 MG, QD
     Route: 048
     Dates: start: 202108

REACTIONS (12)
  - Glycosylated haemoglobin increased [Unknown]
  - Influenza like illness [Unknown]
  - Urticaria [Unknown]
  - Urine output increased [Unknown]
  - Renal impairment [Unknown]
  - Hyperglycaemia [Unknown]
  - Dry mouth [Unknown]
  - Fatigue [Unknown]
  - Decreased appetite [Unknown]
  - Pyrexia [Unknown]
  - Dehydration [Unknown]
  - Lethargy [Unknown]

NARRATIVE: CASE EVENT DATE: 20210823
